APPROVED DRUG PRODUCT: FENOFIBRIC ACID
Active Ingredient: CHOLINE FENOFIBRATE
Strength: EQ 45MG FENOFIBRIC ACID
Dosage Form/Route: CAPSULE, DELAYED RELEASE;ORAL
Application: A213450 | Product #001 | TE Code: AB
Applicant: MICRO LABS LTD
Approved: Jun 16, 2020 | RLD: No | RS: No | Type: RX